FAERS Safety Report 9144303 (Version 1)
Quarter: 2013Q1

REPORT INFORMATION
  Report Type: Report from Study
  Country: DE (occurrence: DE)
  Receive Date: 20130306
  Receipt Date: 20130306
  Transmission Date: 20140127
  Serious: Yes (Hospitalization)
  Sender: FDA-Public Use
  Company Number: DE-TEVA-389261ISR

PATIENT
  Age: 62 Year
  Sex: Female
  Weight: 55 kg

DRUGS (6)
  1. PACLITAXEL [Suspect]
     Indication: OVARIAN CANCER
     Dosage: LAST DOSE PRIOR TO SAE ON 22-JAN-2013
     Route: 042
     Dates: start: 20130122
  2. CARBOPLATIN [Suspect]
     Indication: OVARIAN CANCER
     Dosage: LAST DOSE PRIOR TO SAE ON 22-JAN-2013
     Route: 042
     Dates: start: 20130122
  3. BEVACIZUMAB [Suspect]
     Indication: OVARIAN CANCER
     Dosage: LAST DOSE PRIOR TO SAE ON 22-JAN-2013
     Route: 042
     Dates: start: 20130122
  4. DEXAMETHASON [Concomitant]
     Indication: VOMITING
     Dosage: LAST DOSE PRIOR TO SAE ON 24-JAN-2013
     Route: 048
     Dates: start: 20130122
  5. METOCLOPRAMIDE [Concomitant]
     Indication: VOMITING
     Dosage: LAST DOSE PRIOR TO SAE ON 22-JAN-2013
     Dates: start: 20130122
  6. MACROGOL [Concomitant]
     Indication: CONSTIPATION
     Dosage: LAST DOSE PRIOR TO SAE ON 28-JAN-2013
     Route: 048
     Dates: start: 20130122

REACTIONS (3)
  - Vomiting [Recovered/Resolved]
  - Nausea [Recovered/Resolved]
  - Abdominal pain upper [Recovered/Resolved]
